FAERS Safety Report 4997015-1 (Version None)
Quarter: 2006Q2

REPORT INFORMATION
  Report Type: 
  Country: None (occurrence: None)
  Receive Date: 20060505
  Receipt Date: 20060505
  Transmission Date: 20061013
  Serious: No
  Sender: FDA-Public Use
  Company Number: None

PATIENT
  Age: 88 Year

DRUGS (3)
  1. TRILEPTAL [Suspect]
     Indication: CONVULSION
     Dosage: 600 MG BID PTA
  2. AMBIEN [Concomitant]
  3. LIPITOR [Concomitant]

REACTIONS (3)
  - DYSARTHRIA [None]
  - MENTAL STATUS CHANGES [None]
  - TREMOR [None]
